FAERS Safety Report 12831671 (Version 1)
Quarter: 2016Q4

REPORT INFORMATION
  Report Type: Report from Study
  Country: US (occurrence: US)
  Receive Date: 20161010
  Receipt Date: 20161010
  Transmission Date: 20170207
  Serious: Yes (Other)
  Sender: FDA-Public Use
  Company Number: US-ROCHE-1837684

PATIENT
  Age: 66 Year
  Sex: Female
  Weight: 60.1 kg

DRUGS (15)
  1. BEVACIZUMAB [Suspect]
     Active Substance: BEVACIZUMAB
     Dosage: COURSE ID 6
     Route: 042
     Dates: start: 20150702
  2. VELIPARIB [Suspect]
     Active Substance: VELIPARIB
     Indication: OVARIAN EPITHELIAL CANCER
     Dosage: COURSE ID 1
     Route: 048
  3. VELIPARIB [Suspect]
     Active Substance: VELIPARIB
     Dosage: COURSE ID 3
     Route: 048
  4. VELIPARIB [Suspect]
     Active Substance: VELIPARIB
     Dosage: COURSE ID 4
     Route: 048
     Dates: start: 20150522
  5. BEVACIZUMAB [Suspect]
     Active Substance: BEVACIZUMAB
     Dosage: COURSE ID 3
     Route: 042
     Dates: start: 20150429
  6. BEVACIZUMAB [Suspect]
     Active Substance: BEVACIZUMAB
     Dosage: COURSE ID 7
     Route: 042
     Dates: start: 20150724
  7. VELIPARIB [Suspect]
     Active Substance: VELIPARIB
     Dosage: COURSE ID 2
     Route: 048
  8. VELIPARIB [Suspect]
     Active Substance: VELIPARIB
     Dosage: COURSE ID 5
     Route: 048
     Dates: start: 20150612
  9. VELIPARIB [Suspect]
     Active Substance: VELIPARIB
     Dosage: COURSE ID 6
     Route: 048
     Dates: start: 20150702
  10. BEVACIZUMAB [Suspect]
     Active Substance: BEVACIZUMAB
     Dosage: COURSE ID 9
     Route: 042
     Dates: start: 20150911
  11. BEVACIZUMAB [Suspect]
     Active Substance: BEVACIZUMAB
     Indication: OVARIAN EPITHELIAL CANCER
     Dosage: COURSE ID 2
     Route: 042
     Dates: start: 20150327
  12. BEVACIZUMAB [Suspect]
     Active Substance: BEVACIZUMAB
     Dosage: COURSE ID 8
     Route: 042
     Dates: start: 20150814
  13. BEVACIZUMAB [Suspect]
     Active Substance: BEVACIZUMAB
     Dosage: COURSE ID 10
     Route: 042
     Dates: start: 20151002
  14. BEVACIZUMAB [Suspect]
     Active Substance: BEVACIZUMAB
     Dosage: COURSE ID 5
     Route: 042
     Dates: start: 20150612
  15. BEVACIZUMAB [Suspect]
     Active Substance: BEVACIZUMAB
     Dosage: COURSE ID 4
     Route: 042
     Dates: start: 20150522

REACTIONS (5)
  - White blood cell count decreased [Unknown]
  - Neutrophil count decreased [Unknown]
  - Hypertension [Unknown]
  - Rectal haemorrhage [Unknown]
  - Anaemia [Unknown]
